FAERS Safety Report 11795644 (Version 2)
Quarter: 2015Q4

REPORT INFORMATION
  Report Type: Spontaneous
  Country: US (occurrence: US)
  Receive Date: 20151202
  Receipt Date: 20151210
  Transmission Date: 20160305
  Serious: No
  Sender: FDA-Public Use
  Company Number: US-GILEAD-2015-0184522

PATIENT
  Age: 44 Year
  Sex: Female
  Weight: 74.88 kg

DRUGS (2)
  1. TRUVADA [Suspect]
     Active Substance: EMTRICITABINE\TENOFOVIR DISOPROXIL FUMARATE
     Indication: PROPHYLAXIS
     Dosage: UNK UNK, ONCE
     Route: 065
     Dates: start: 20151117, end: 20151117
  2. ISENTRESS [Concomitant]
     Active Substance: RALTEGRAVIR POTASSIUM
     Indication: PROPHYLAXIS
     Dosage: UNK, ONCE

REACTIONS (12)
  - Hypoaesthesia [Recovering/Resolving]
  - Paraesthesia [Not Recovered/Not Resolved]
  - Hypersensitivity [Recovering/Resolving]
  - Eructation [Unknown]
  - Off label use [Unknown]
  - Discomfort [Recovering/Resolving]
  - Akathisia [Recovering/Resolving]
  - Formication [Recovering/Resolving]
  - Insomnia [Recovered/Resolved]
  - Feeling abnormal [Recovering/Resolving]
  - Feeling hot [Not Recovered/Not Resolved]
  - Vomiting [Recovering/Resolving]

NARRATIVE: CASE EVENT DATE: 20151117
